FAERS Safety Report 12950046 (Version 1)
Quarter: 2016Q4

REPORT INFORMATION
  Report Type: Spontaneous
  Country: US (occurrence: US)
  Receive Date: 20161116
  Receipt Date: 20161116
  Transmission Date: 20170207
  Serious: No
  Sender: FDA-Public Use
  Company Number: None

PATIENT
  Age: 62 Year
  Sex: Male
  Weight: 55.84 kg

DRUGS (1)
  1. CAPECITABINE 500 MG MYLAN [Suspect]
     Active Substance: CAPECITABINE
     Indication: NEOPLASM MALIGNANT
     Route: 048
     Dates: start: 20160609

REACTIONS (6)
  - Urticaria [None]
  - Pruritus [None]
  - Abasia [None]
  - Pain in extremity [None]
  - Feeling cold [None]
  - Hyperaesthesia [None]
